FAERS Safety Report 5647148-1 (Version None)
Quarter: 2008Q1

REPORT INFORMATION
  Report Type: 
  Country: None (occurrence: None)
  Receive Date: 20080303
  Receipt Date: 20080227
  Transmission Date: 20080703
  Serious: Yes (Hospitalization)
  Sender: FDA-Public Use
  Company Number: GB-BRISTOL-MYERS SQUIBB COMPANY-14094825

PATIENT
  Age: 71 Year
  Sex: Male

DRUGS (2)
  1. SINEMET CR [Suspect]
  2. RANITIDINE [Concomitant]
     Route: 042

REACTIONS (1)
  - CARDIAC OPERATION [None]
